FAERS Safety Report 7593442-7 (Version None)
Quarter: 2011Q3

REPORT INFORMATION
  Report Type: 
  Country: None (occurrence: None)
  Receive Date: 20110706
  Receipt Date: 20110628
  Transmission Date: 20111222
  Serious: Yes (Hospitalization)
  Sender: FDA-Public Use
  Company Number: JP-MERCK-1102USA00913

PATIENT
  Age: 87 Year
  Sex: Female

DRUGS (5)
  1. JANUVIA [Suspect]
     Indication: TYPE 2 DIABETES MELLITUS
     Route: 048
     Dates: start: 20110106, end: 20110114
  2. ADALAT CC [Concomitant]
     Route: 065
     Dates: start: 20110106
  3. SOLDOL E [Concomitant]
     Route: 065
     Dates: start: 20110106
  4. NOVOLIN R [Concomitant]
     Route: 058
     Dates: start: 20110104, end: 20110111
  5. NOVOLIN R [Concomitant]
     Route: 042
     Dates: start: 20110104, end: 20110111

REACTIONS (1)
  - HYPERKALAEMIA [None]
